FAERS Safety Report 12175600 (Version 2)
Quarter: 2016Q2

REPORT INFORMATION
  Report Type: Spontaneous
  Country: US (occurrence: US)
  Receive Date: 20160314
  Receipt Date: 20160516
  Transmission Date: 20160815
  Serious: No
  Sender: FDA-Public Use
  Company Number: US-TEVA-640881USA

PATIENT
  Age: 22 Year
  Sex: Female

DRUGS (10)
  1. SOYA LECITHIN [Concomitant]
     Active Substance: DIETARY SUPPLEMENT
  2. COPAXONE [Suspect]
     Active Substance: GLATIRAMER ACETATE
     Indication: MULTIPLE SCLEROSIS
     Route: 058
     Dates: start: 20160105
  3. LITHIUM. [Concomitant]
     Active Substance: LITHIUM
  4. MULTIVITAMIN WOMENS [Concomitant]
  5. RESTORIL [Concomitant]
     Active Substance: TEMAZEPAM
  6. VISTARIL [Concomitant]
     Active Substance: HYDROXYZINE PAMOATE
  7. COENZYME Q10 [Concomitant]
     Active Substance: UBIDECARENONE
  8. L-THEANINE [Concomitant]
     Active Substance: DIETARY SUPPLEMENT
  9. PRAZOSIN [Concomitant]
     Active Substance: PRAZOSIN
  10. FISH OIL [Concomitant]
     Active Substance: FISH OIL

REACTIONS (8)
  - Injection site pain [Unknown]
  - Dysphagia [Unknown]
  - Dizziness [Unknown]
  - Chest discomfort [Unknown]
  - Flushing [Unknown]
  - Urticaria [Unknown]
  - Palpitations [Unknown]
  - Injection site reaction [Unknown]

NARRATIVE: CASE EVENT DATE: 20160105
